FAERS Safety Report 20589790 (Version 1)
Quarter: 2022Q1

REPORT INFORMATION
  Report Type: Spontaneous
  Country: US (occurrence: US)
  Receive Date: 20220314
  Receipt Date: 20220314
  Transmission Date: 20220423
  Serious: Yes (Hospitalization)
  Sender: FDA-Public Use
  Company Number: US-GW PHARMA-202203USGW01200

PATIENT
  Age: 17 Year
  Sex: Female
  Weight: 34.921 kg

DRUGS (1)
  1. EPIDIOLEX [Suspect]
     Active Substance: CANNABIDIOL
     Indication: Lennox-Gastaut syndrome
     Dosage: 37.23 MG/KG/DAY, 1300 MILLIGRAM, QD (300 MG IN THE MORNING AND 1000 MG IN THE EVENING)
     Route: 048
     Dates: start: 20220215

REACTIONS (2)
  - Seizure [Unknown]
  - Prescribed overdose [Unknown]

NARRATIVE: CASE EVENT DATE: 20220226
